FAERS Safety Report 10089429 (Version 2)
Quarter: 2014Q2

REPORT INFORMATION
  Report Type: Spontaneous
  Country: JP (occurrence: JP)
  Receive Date: 20140421
  Receipt Date: 20140421
  Transmission Date: 20141212
  Serious: Yes (Other)
  Sender: FDA-Public Use
  Company Number: JP-BAXTER-2014BAX007773

PATIENT
  Age: 76 Year
  Sex: Male
  Weight: 58.7 kg

DRUGS (13)
  1. SUPRANE [Suspect]
     Indication: PANCREATICODUODENECTOMY
     Route: 055
     Dates: start: 20140131, end: 20140131
  2. ULTIVA [Suspect]
     Indication: PANCREATICODUODENECTOMY
     Route: 042
     Dates: start: 20140131
  3. ESLAX [Suspect]
     Indication: PANCREATICODUODENECTOMY
     Route: 042
     Dates: start: 20140131
  4. FENTANYL [Suspect]
     Indication: PANCREATICODUODENECTOMY
     Route: 042
     Dates: start: 20140131
  5. MORPHINE HYDROCHLORIDE HYDRATE [Suspect]
     Indication: PANCREATICODUODENECTOMY
     Route: 008
     Dates: start: 20140131
  6. ANAPEINE [Suspect]
     Indication: PANCREATICODUODENECTOMY
     Route: 008
     Dates: start: 20140131
  7. ALEVIATIN [Concomitant]
     Indication: EPILEPSY
     Route: 048
  8. TEGRETOL [Concomitant]
     Indication: EPILEPSY
     Route: 048
  9. HEPARIN [Concomitant]
     Indication: CEREBRAL INFARCTION
     Dates: start: 20140124, end: 20140131
  10. BAYASPIRIN [Concomitant]
     Indication: CEREBRAL INFARCTION
     Route: 048
     Dates: end: 20140121
  11. BLOPRESS [Concomitant]
     Indication: HYPERTENSION
     Route: 048
  12. CARBOCISTEINE [Concomitant]
     Indication: ATYPICAL MYCOBACTERIAL INFECTION
     Route: 048
  13. LYRICA [Concomitant]
     Indication: SPINAL COLUMN STENOSIS
     Route: 048

REACTIONS (1)
  - Epilepsy [Recovered/Resolved]
